FAERS Safety Report 17027019 (Version 1)
Quarter: 2019Q4

REPORT INFORMATION
  Report Type: Spontaneous
  Country: CN (occurrence: CN)
  Receive Date: 20191113
  Receipt Date: 20191113
  Transmission Date: 20200122
  Serious: Yes (Life-Threatening, Hospitalization)
  Sender: FDA-Public Use
  Company Number: CN-BAXTER-2019BAX022508

PATIENT
  Age: 69 Year
  Sex: Male
  Weight: 70 kg

DRUGS (24)
  1. 5% GLUCOSE  INJECTION [Suspect]
     Active Substance: DEXTROSE
     Indication: LUNG ADENOCARCINOMA
  2. CARBOPLATIN. [Suspect]
     Active Substance: CARBOPLATIN
     Indication: METASTASES TO THE MEDIASTINUM
  3. CARBOPLATIN. [Suspect]
     Active Substance: CARBOPLATIN
     Indication: CANCER SURGERY
  4. LIPUSU [Suspect]
     Active Substance: PACLITAXEL
     Indication: HUMAN EPIDERMAL GROWTH FACTOR RECEPTOR NEGATIVE
  5. 5% GLUCOSE  INJECTION [Suspect]
     Active Substance: DEXTROSE
     Indication: METASTASES TO LUNG
  6. 5% GLUCOSE  INJECTION [Suspect]
     Active Substance: DEXTROSE
     Indication: LUNG ADENOCARCINOMA
  7. CARBOPLATIN. [Suspect]
     Active Substance: CARBOPLATIN
     Indication: METASTASES TO LUNG
  8. LIPUSU [Suspect]
     Active Substance: PACLITAXEL
     Indication: METASTASES TO LUNG
  9. CARBOPLATIN. [Suspect]
     Active Substance: CARBOPLATIN
     Indication: HUMAN EPIDERMAL GROWTH FACTOR RECEPTOR NEGATIVE
  10. LIPUSU [Suspect]
     Active Substance: PACLITAXEL
     Indication: METASTASES TO THE MEDIASTINUM
  11. LIPUSU [Suspect]
     Active Substance: PACLITAXEL
     Indication: CANCER SURGERY
  12. LIPUSU [Suspect]
     Active Substance: PACLITAXEL
     Indication: ADENOCARCINOMA OF COLON
  13. 5% GLUCOSE  INJECTION [Suspect]
     Active Substance: DEXTROSE
     Indication: METASTASES TO THORAX
     Dosage: PACLITAXEL LIPOSOME 240MG+5% GS 500ML
     Route: 041
     Dates: start: 20190919, end: 20190919
  14. LIPUSU [Suspect]
     Active Substance: PACLITAXEL
     Indication: GENE MUTATION IDENTIFICATION TEST NEGATIVE
     Route: 041
     Dates: start: 20190919, end: 20190919
  15. LIPUSU [Suspect]
     Active Substance: PACLITAXEL
     Indication: LUNG ADENOCARCINOMA
  16. 5% GLUCOSE  INJECTION [Suspect]
     Active Substance: DEXTROSE
     Indication: METASTASES TO THE MEDIASTINUM
  17. CARBOPLATIN. [Suspect]
     Active Substance: CARBOPLATIN
     Indication: HUMAN EPIDERMAL GROWTH FACTOR RECEPTOR NEGATIVE
     Route: 041
     Dates: start: 20190919, end: 20190919
  18. 5% GLUCOSE  INJECTION [Suspect]
     Active Substance: DEXTROSE
     Indication: METASTASES TO THORAX
     Dosage: CARBOPLAIN 500MG+100ML 5% GS 500ML
     Route: 041
     Dates: start: 20190919, end: 20190919
  19. 5% GLUCOSE  INJECTION [Suspect]
     Active Substance: DEXTROSE
     Indication: CANCER SURGERY
  20. CARBOPLATIN. [Suspect]
     Active Substance: CARBOPLATIN
     Indication: GENE MUTATION IDENTIFICATION TEST NEGATIVE
  21. CARBOPLATIN. [Suspect]
     Active Substance: CARBOPLATIN
     Indication: GENE MUTATION IDENTIFICATION TEST NEGATIVE
  22. CARBOPLATIN. [Suspect]
     Active Substance: CARBOPLATIN
     Indication: ADENOCARCINOMA OF COLON
  23. 5% GLUCOSE  INJECTION [Suspect]
     Active Substance: DEXTROSE
     Indication: ADENOCARCINOMA OF COLON
  24. LIPUSU [Suspect]
     Active Substance: PACLITAXEL
     Indication: METASTASES TO THORAX

REACTIONS (1)
  - Bone marrow failure [Recovering/Resolving]

NARRATIVE: CASE EVENT DATE: 20191001
